FAERS Safety Report 10732057 (Version 1)
Quarter: 2015Q1

REPORT INFORMATION
  Report Type: Spontaneous
  Country: US (occurrence: None)
  Receive Date: 20150121
  Receipt Date: 20150121
  Transmission Date: 20150721
  Serious: Yes (Disabling, Other)
  Sender: FDA-Public Use
  Company Number: None

PATIENT
  Age: 57 Year
  Sex: Female
  Weight: 61.24 kg

DRUGS (1)
  1. PROLIA [Suspect]
     Active Substance: DENOSUMAB
     Indication: OSTEOPOROSIS
     Dosage: ONE SHOT EVERY SIX MONTHS  INJECTION 2X YR.  INTO THE MUSCLE
     Route: 030
     Dates: start: 20131031, end: 20141031

REACTIONS (8)
  - Laceration [None]
  - Intentional self-injury [None]
  - Impaired work ability [None]
  - Suicidal ideation [None]
  - Abnormal behaviour [None]
  - Personality change [None]
  - Anger [None]
  - Social problem [None]
